FAERS Safety Report 10013817 (Version 1)
Quarter: 2014Q1

REPORT INFORMATION
  Report Type: Spontaneous
  Country: CA (occurrence: CA)
  Receive Date: 20140316
  Receipt Date: 20140316
  Transmission Date: 20141002
  Serious: Yes (Disabling, Other)
  Sender: FDA-Public Use
  Company Number: CA-B.I. PHARMACEUTICALS,INC./RIDGEFIELD-2014-BI-10503CN

PATIENT
  Age: 71 Year
  Sex: Female
  Weight: 57 kg

DRUGS (3)
  1. PULMICORT TURBUHALER 200MCG/DOSE [Concomitant]
     Route: 065
  2. VENTOLIN HFA [Concomitant]
     Route: 065
  3. SPIRIVA [Suspect]
     Indication: PRODUCT USED FOR UNKNOWN INDICATION
     Dosage: 18 MCG
     Route: 055

REACTIONS (7)
  - Chest discomfort [Not Recovered/Not Resolved]
  - Eye haemorrhage [Not Recovered/Not Resolved]
  - Vascular rupture [Not Recovered/Not Resolved]
  - Dizziness [Not Recovered/Not Resolved]
  - Dry mouth [Not Recovered/Not Resolved]
  - Lip dry [Not Recovered/Not Resolved]
  - Vision blurred [Not Recovered/Not Resolved]
